FAERS Safety Report 20736898 (Version 1)
Quarter: 2022Q2

REPORT INFORMATION
  Report Type: Spontaneous
  Country: US (occurrence: US)
  Receive Date: 20220421
  Receipt Date: 20220421
  Transmission Date: 20220721
  Serious: No
  Sender: FDA-Public Use
  Company Number: US-PFIZER INC-202101427422

PATIENT
  Age: 37 Year
  Sex: Female

DRUGS (2)
  1. LORBRENA [Suspect]
     Active Substance: LORLATINIB
     Indication: Non-small cell lung cancer
     Dosage: UNK
     Dates: start: 202106
  2. LORBRENA [Suspect]
     Active Substance: LORLATINIB
     Dosage: 75 MG

REACTIONS (3)
  - Arthralgia [Unknown]
  - Peripheral swelling [Unknown]
  - Swelling [Unknown]
